FAERS Safety Report 25222304 (Version 2)
Quarter: 2025Q3

REPORT INFORMATION
  Report Type: Spontaneous
  Country: JP (occurrence: JP)
  Receive Date: 20250421
  Receipt Date: 20250719
  Transmission Date: 20251020
  Serious: Yes (Hospitalization, Disabling)
  Sender: MERCK SHARP & DOHME LLC
  Company Number: JP-MSD-M2023-01862

PATIENT
  Age: 61 Year
  Sex: Female
  Weight: 68 kg

DRUGS (20)
  1. KEYTRUDA [Suspect]
     Active Substance: PEMBROLIZUMAB
     Dosage: DOSE DESCRIPTION : 200 MILLIGRAM, Q3W?DAILY DOSE : 9.4 MILLIGRAM?REGIMEN DOSE : 200  MILLIGRAM
     Route: 041
     Dates: start: 20221116, end: 2022
  2. KEYTRUDA [Suspect]
     Active Substance: PEMBROLIZUMAB
     Route: 041
     Dates: start: 202212, end: 20221228
  3. PACLITAXEL [Suspect]
     Active Substance: PACLITAXEL
     Indication: Triple negative breast cancer
     Dosage: DOSE DESCRIPTION : 130 MILLIGRAM, QW?DAILY DOSE : 18.59 MILLIGRAM?REGIMEN DOSE : 1170  MILLIGRAM
     Route: 041
     Dates: start: 20221116, end: 20230111
  4. CARBOPLATIN [Concomitant]
     Active Substance: CARBOPLATIN
     Indication: Triple negative breast cancer
     Dosage: DOSE DESCRIPTION : 105 MILLIGRAM, QW?DAILY DOSE : 15.015 MILLIGRAM?REGIMEN DOSE : 945  MILLIGRAM
     Route: 041
     Dates: start: 20221116, end: 20230111
  5. MAGNESIUM OXIDE [Concomitant]
     Active Substance: MAGNESIUM OXIDE
     Indication: Chemotherapy side effect prophylaxis
     Route: 048
  6. DECADRON [Concomitant]
     Active Substance: DEXAMETHASONE
     Indication: Chemotherapy side effect prophylaxis
     Route: 048
  7. LANSOPRAZOLE [Concomitant]
     Active Substance: LANSOPRAZOLE
     Indication: Chemotherapy side effect prophylaxis
     Route: 048
  8. NAUZELIN [Concomitant]
     Active Substance: DOMPERIDONE
     Indication: Chemotherapy side effect prophylaxis
     Route: 048
  9. VOLTAREN [Concomitant]
     Active Substance: DICLOFENAC SODIUM
     Indication: Chemotherapy side effect prophylaxis
     Route: 048
  10. CARBOCYSTEINE [Concomitant]
     Active Substance: CARBOCYSTEINE
     Indication: Chemotherapy side effect prophylaxis
     Route: 048
  11. SODIUM PICOSULFATE [Concomitant]
     Active Substance: SODIUM PICOSULFATE
     Indication: Chemotherapy side effect prophylaxis
     Route: 048
  12. MIROGABALIN BESYLATE [Concomitant]
     Active Substance: MIROGABALIN BESYLATE
     Indication: Chemotherapy side effect prophylaxis
     Route: 048
  13. ENTRESTO [Concomitant]
     Active Substance: SACUBITRIL\VALSARTAN
     Indication: Illness
     Route: 048
  14. LINAGLIPTIN [Concomitant]
     Active Substance: LINAGLIPTIN
     Indication: Illness
     Route: 048
  15. METGLUCO [Concomitant]
     Active Substance: METFORMIN HYDROCHLORIDE
     Indication: Illness
     Route: 048
  16. ATENOLOL [Concomitant]
     Active Substance: ATENOLOL
     Indication: Illness
     Route: 048
  17. CILNIDIPINE [Concomitant]
     Active Substance: CILNIDIPINE
     Indication: Illness
     Route: 048
  18. RYBELSUS [Concomitant]
     Active Substance: SEMAGLUTIDE
     Indication: Illness
     Route: 048
  19. CILNIDIPINE [Concomitant]
     Active Substance: CILNIDIPINE
     Indication: Illness
     Route: 048
  20. INSULIN NOS [Concomitant]
     Active Substance: INSULIN NOS
     Indication: Illness
     Route: 058

REACTIONS (6)
  - Adrenocorticotropic hormone deficiency [Not Recovered/Not Resolved]
  - Cerebral infarction [Recovering/Resolving]
  - Intracranial aneurysm [Recovered/Resolved]
  - Decreased activity [Not Recovered/Not Resolved]
  - Immune-mediated adrenal insufficiency [Not Recovered/Not Resolved]
  - Neuropathy peripheral [Not Recovered/Not Resolved]

NARRATIVE: CASE EVENT DATE: 20221207
